FAERS Safety Report 12237772 (Version 2)
Quarter: 2016Q2

REPORT INFORMATION
  Report Type: Report from Study
  Country: FI (occurrence: FI)
  Receive Date: 20160405
  Receipt Date: 20160607
  Transmission Date: 20160815
  Serious: Yes (Hospitalization, Other)
  Sender: FDA-Public Use
  Company Number: PHHY2014FI159943

PATIENT
  Age: 49 Year
  Sex: Male

DRUGS (4)
  1. GILENYA [Suspect]
     Active Substance: FINGOLIMOD HYDROCHLORIDE
     Indication: MULTIPLE SCLEROSIS
     Dosage: 0.5 MG, QD
     Route: 065
     Dates: start: 201403, end: 201602
  2. ESCITALOPRAM [Concomitant]
     Active Substance: ESCITALOPRAM OXALATE
     Indication: PRODUCT USED FOR UNKNOWN INDICATION
     Dosage: UNK
     Route: 065
     Dates: end: 201408
  3. VITAMIN D [Concomitant]
     Active Substance: CHOLECALCIFEROL
     Dosage: 50 MG, QD (DURING THE SUMMER)
     Route: 065
  4. VITAMIN D [Concomitant]
     Active Substance: CHOLECALCIFEROL
     Indication: PRODUCT USED FOR UNKNOWN INDICATION
     Dosage: 100 MG, QD
     Route: 065

REACTIONS (38)
  - Visual impairment [Not Recovered/Not Resolved]
  - Heart rate decreased [Recovered/Resolved]
  - Dyspnoea [Not Recovered/Not Resolved]
  - Pollakiuria [Not Recovered/Not Resolved]
  - Fatigue [Recovering/Resolving]
  - Burning sensation [Not Recovered/Not Resolved]
  - Multiple sclerosis relapse [Unknown]
  - Dizziness [Not Recovered/Not Resolved]
  - Balance disorder [Not Recovered/Not Resolved]
  - Muscle spasticity [Not Recovered/Not Resolved]
  - Musculoskeletal stiffness [Not Recovered/Not Resolved]
  - Central nervous system lesion [Unknown]
  - Concomitant disease aggravated [Not Recovered/Not Resolved]
  - Cerebral atrophy [Unknown]
  - Gamma-glutamyltransferase increased [Not Recovered/Not Resolved]
  - Stress [Unknown]
  - Pain [Not Recovered/Not Resolved]
  - Sensory disturbance [Recovered/Resolved]
  - Upper extremity mass [Not Recovered/Not Resolved]
  - Mood altered [Recovering/Resolving]
  - Hepatic steatosis [Not Recovered/Not Resolved]
  - Gait disturbance [Recovered/Resolved]
  - Sensory loss [Not Recovered/Not Resolved]
  - Fatigue [Recovered/Resolved]
  - Heart rate increased [Not Recovered/Not Resolved]
  - Asthenopia [Not Recovered/Not Resolved]
  - Alanine aminotransferase increased [Not Recovered/Not Resolved]
  - Headache [Not Recovered/Not Resolved]
  - Back pain [Recovered/Resolved]
  - Visual acuity reduced [Not Recovered/Not Resolved]
  - Diplopia [Not Recovered/Not Resolved]
  - Nocturia [Not Recovered/Not Resolved]
  - Middle insomnia [Recovering/Resolving]
  - Therapeutic response unexpected [Not Recovered/Not Resolved]
  - Multiple sclerosis relapse [Recovered/Resolved]
  - Tearfulness [Recovering/Resolving]
  - Depression [Recovering/Resolving]
  - Aspartate aminotransferase increased [Unknown]

NARRATIVE: CASE EVENT DATE: 2014
